FAERS Safety Report 17720343 (Version 1)
Quarter: 2020Q2

REPORT INFORMATION
  Report Type: Report from Study
  Country: CO (occurrence: CO)
  Receive Date: 20200428
  Receipt Date: 20200428
  Transmission Date: 20200714
  Serious: Yes (Hospitalization)
  Sender: FDA-Public Use
  Company Number: NVSC2017CO007132

PATIENT
  Sex: Male

DRUGS (1)
  1. AFINITOR [Suspect]
     Active Substance: EVEROLIMUS
     Indication: NEOPLASM MALIGNANT
     Dosage: 1 OT, QD
     Route: 065

REACTIONS (4)
  - Intracranial aneurysm [Unknown]
  - Headache [Unknown]
  - Neck pain [Unknown]
  - Chest pain [Unknown]

NARRATIVE: CASE EVENT DATE: 20171022
